FAERS Safety Report 8431303-1 (Version None)
Quarter: 2012Q2

REPORT INFORMATION
  Report Type: 
  Country: None (occurrence: None)
  Receive Date: 20120613
  Receipt Date: 20120606
  Transmission Date: 20120825
  Serious: Yes (Hospitalization)
  Sender: FDA-Public Use
  Company Number: 2005BI012020

PATIENT
  Age: 45 Year
  Sex: Female

DRUGS (5)
  1. AVONEX [Suspect]
     Route: 030
     Dates: start: 20051216, end: 20060516
  2. AVONEX [Suspect]
     Route: 030
     Dates: start: 20050416, end: 20050601
  3. ANTI-DEPRESSANT [Concomitant]
     Indication: DEPRESSION
  4. AVONEX [Suspect]
     Indication: MULTIPLE SCLEROSIS
     Route: 030
     Dates: start: 20020416, end: 20040116
  5. AVONEX [Suspect]
     Route: 030
     Dates: start: 20061215, end: 20070219

REACTIONS (3)
  - FAECAL INCONTINENCE [None]
  - INFLUENZA LIKE ILLNESS [None]
  - RECTAL CANCER [None]
